FAERS Safety Report 24650561 (Version 1)
Quarter: 2024Q4

REPORT INFORMATION
  Report Type: Spontaneous
  Country: SE (occurrence: SE)
  Receive Date: 20241122
  Receipt Date: 20241122
  Transmission Date: 20250115
  Serious: Yes (Other)
  Sender: ABBVIE
  Company Number: None

PATIENT
  Age: 27 Year
  Sex: Female

DRUGS (2)
  1. ESCITALOPRAM OXALATE [Suspect]
     Active Substance: ESCITALOPRAM OXALATE
     Indication: Product used for unknown indication
     Dosage: START WITH 10 MG AND INCREASE TO 20 MG AFTER 2-3 DAYS.
     Route: 048
     Dates: start: 20240920, end: 20240922
  2. ESCITALOPRAM OXALATE [Suspect]
     Active Substance: ESCITALOPRAM OXALATE
     Indication: Product used for unknown indication
     Dosage: START WITH 10 MG AND INCREASE TO 20 MG AFTER 2-3 DAYS.
     Route: 048
     Dates: start: 20240923, end: 20240924

REACTIONS (4)
  - Dyspnoea [Recovering/Resolving]
  - Rhonchi [Not Recovered/Not Resolved]
  - Respiratory depth decreased [Recovering/Resolving]
  - Product use in unapproved indication [Unknown]

NARRATIVE: CASE EVENT DATE: 20240923
